FAERS Safety Report 13622453 (Version 1)
Quarter: 2017Q2

REPORT INFORMATION
  Report Type: Spontaneous
  Country: US (occurrence: US)
  Receive Date: 20170607
  Receipt Date: 20170607
  Transmission Date: 20170830
  Serious: No
  Sender: FDA-Public Use
  Company Number: US-ROCHE-646865

PATIENT
  Sex: Male
  Weight: 72.4 kg

DRUGS (12)
  1. FUZEON [Suspect]
     Active Substance: ENFUVIRTIDE
     Indication: RETROVIRAL INFECTION
     Dosage: START DATE: PRIOR TO ADMISSION
     Route: 042
  2. VITAMIN B12 [Concomitant]
     Active Substance: CYANOCOBALAMIN
     Indication: HYPOVITAMINOSIS
     Dosage: START DATE: PRIOR TO ADMISSION
     Route: 048
  3. KAPIDEX [Concomitant]
     Active Substance: DEXLANSOPRAZOLE
     Dosage: START DATE: PRIOR TO ADMISSION; INDICATION: PPI
     Route: 048
  4. ISENTRESS [Concomitant]
     Active Substance: RALTEGRAVIR POTASSIUM
     Indication: RETROVIRAL INFECTION
     Dosage: START DATE: PRIOR TO ADMISSION
     Route: 048
  5. LORAZEPAM. [Concomitant]
     Active Substance: LORAZEPAM
     Indication: ANXIETY
     Dosage: START DATE: PRIOR TO ADMISSION
     Route: 048
  6. PRAVASTATIN. [Concomitant]
     Active Substance: PRAVASTATIN
     Indication: HYPERLIPIDAEMIA
     Dosage: START DATE: PRIOR TO ADMISSION
     Route: 048
  7. TRUVADA [Concomitant]
     Active Substance: EMTRICITABINE\TENOFOVIR DISOPROXIL FUMARATE
     Indication: RETROVIRAL INFECTION
     Dosage: START DATE: PRIOR TO ADMISSION
     Route: 048
  8. BACTRIM DS [Concomitant]
     Active Substance: SULFAMETHOXAZOLE\TRIMETHOPRIM
     Indication: ANTIBIOTIC THERAPY
     Dosage: START DATE: PRIOR TO ADMISSION
     Route: 048
  9. NORVIR [Concomitant]
     Active Substance: RITONAVIR
     Indication: RETROVIRAL INFECTION
     Dosage: START DATE: PRIOR TO ADMISSION
     Route: 048
  10. CITALOPRAM [Concomitant]
     Active Substance: CITALOPRAM HYDROBROMIDE
     Indication: ANTIDEPRESSANT THERAPY
     Dosage: START DATE: PRIOR TO ADMISSION
     Route: 048
  11. FENTANYL. [Concomitant]
     Active Substance: FENTANYL
     Indication: PAIN
     Dosage: INDICATION: RELIEF OF PAIN; START DATE: PRIOR TO ADMISSION
     Route: 062
  12. PREZISTA [Concomitant]
     Active Substance: DARUNAVIR ETHANOLATE
     Indication: RETROVIRAL INFECTION
     Dosage: START DATE: PRIOR TO ADMISSION
     Route: 048

REACTIONS (2)
  - Drug administration error [Unknown]
  - No adverse event [Unknown]
